FAERS Safety Report 8780253 (Version 1)
Quarter: 2012Q4

REPORT INFORMATION
  Report Type: Spontaneous
  Country: US (occurrence: None)
  Receive Date: 20120905
  Receipt Date: 20120905
  Transmission Date: 20130627
  Serious: Yes (Other)
  Sender: FDA-Public Use
  Company Number: None

PATIENT
  Age: 64 Year
  Sex: Female
  Weight: 65.77 kg

DRUGS (1)
  1. LUNESTA [Suspect]
     Indication: INSOMNIA
     Dosage: 1x daily
     Dates: start: 20120723, end: 20120803

REACTIONS (5)
  - Pruritus [None]
  - Perfume sensitivity [None]
  - Eye pruritus [None]
  - Nasal discomfort [None]
  - Burning sensation [None]
